FAERS Safety Report 19351231 (Version 1)
Quarter: 2021Q2

REPORT INFORMATION
  Report Type: Spontaneous
  Country: US (occurrence: US)
  Receive Date: 20210531
  Receipt Date: 20210531
  Transmission Date: 20210717
  Serious: No
  Sender: FDA-Public Use
  Company Number: US-HIKMA PHARMACEUTICALS USA INC.-US-H14001-21-00614

PATIENT
  Age: 15 Year
  Sex: Male

DRUGS (1)
  1. DOXYCYCLINE. [Suspect]
     Active Substance: DOXYCYCLINE
     Indication: ACNE
     Route: 048
     Dates: start: 20210127

REACTIONS (8)
  - Illness [Unknown]
  - Chills [Unknown]
  - Product dose omission issue [Unknown]
  - Reaction to excipient [Unknown]
  - Diarrhoea [Unknown]
  - Nausea [Unknown]
  - Productive cough [Unknown]
  - Dysstasia [Unknown]

NARRATIVE: CASE EVENT DATE: 20210128
